FAERS Safety Report 9922017 (Version 2)
Quarter: 2014Q1

REPORT INFORMATION
  Report Type: Spontaneous
  Country: IT (occurrence: IT)
  Receive Date: 20140225
  Receipt Date: 20140228
  Transmission Date: 20141002
  Serious: Yes (Other)
  Sender: FDA-Public Use
  Company Number: IT-ASTRAZENECA-2014SE11449

PATIENT
  Age: 13765 Day
  Sex: Female

DRUGS (5)
  1. PROPOFOL (NON AZ PRODUCT) [Suspect]
     Indication: GENERAL ANAESTHESIA
     Route: 040
     Dates: start: 20140113, end: 20140113
  2. AUGMENTIN [Suspect]
     Indication: ANTIBIOTIC PROPHYLAXIS
     Dosage: 2 G DAILY, 2000MG/200MG POWDER FOR SOLUTION FOR INFUSION
     Route: 040
     Dates: start: 20140113, end: 20140113
  3. ESMERON [Suspect]
     Indication: GENERAL ANAESTHESIA
     Dosage: 40 MG DAILY, 10MG/ML SOLUTION FOR INJECTION
     Route: 040
     Dates: start: 20140113, end: 20140113
  4. FENTANEST [Concomitant]
     Dosage: 0.1MG/2ML SOLUTION FOR INJECTION
     Route: 040
  5. MIDAZOLAM [Concomitant]
     Route: 040

REACTIONS (3)
  - Supraventricular tachycardia [Recovered/Resolved]
  - Hypersensitivity [Recovered/Resolved]
  - Hypotension [Recovered/Resolved]
